FAERS Safety Report 8309392-4 (Version None)
Quarter: 2012Q2

REPORT INFORMATION
  Report Type: 
  Country: None (occurrence: None)
  Receive Date: 20120420
  Receipt Date: 20120312
  Transmission Date: 20120825
  Serious: Yes (Hospitalization)
  Sender: FDA-Public Use
  Company Number: 2012SP014059

PATIENT
  Age: 87 Year
  Sex: Female
  Weight: 34 kg

DRUGS (5)
  1. ARICEPT [Concomitant]
  2. GRAMALIL [Concomitant]
  3. CLARITIN [Suspect]
     Indication: PRURITUS
     Dosage: 10 MG, BID, PO
     Route: 048
     Dates: start: 20110429, end: 20120219
  4. MAGMITT [Concomitant]
  5. LANSOPRAZOLE [Concomitant]

REACTIONS (1)
  - EPILEPSY [None]
